FAERS Safety Report 4506734-2 (Version None)
Quarter: 2004Q4

REPORT INFORMATION
  Report Type: 
  Country: None (occurrence: None)
  Receive Date: 20041122
  Receipt Date: 20041014
  Transmission Date: 20050328
  Serious: Yes (Hospitalization)
  Sender: FDA-Public Use
  Company Number: EC-MERCK-0411PER00015

PATIENT
  Sex: Female

DRUGS (3)
  1. VIOXX [Suspect]
     Indication: SLE ARTHRITIS
     Route: 048
  2. PREDNISONE [Concomitant]
     Route: 065
  3. ENALAPRIL MALEATE [Concomitant]
     Route: 065

REACTIONS (2)
  - HYPERTENSION [None]
  - TACHYCARDIA [None]
